FAERS Safety Report 9052285 (Version 1)
Quarter: 2013Q1

REPORT INFORMATION
  Report Type: Spontaneous
  Country: US (occurrence: US)
  Receive Date: 20130206
  Receipt Date: 20130206
  Transmission Date: 20140127
  Serious: Yes (Hospitalization)
  Sender: FDA-Public Use
  Company Number: US-009507513-1302USA001392

PATIENT
  Age: 58 Year
  Sex: Male

DRUGS (1)
  1. JANUMET [Suspect]
     Dosage: 50/1000MG PER BID
     Route: 048

REACTIONS (1)
  - Pancreatitis [Recovering/Resolving]
